FAERS Safety Report 16803765 (Version 1)
Quarter: 2019Q3

REPORT INFORMATION
  Report Type: Spontaneous
  Country: US (occurrence: US)
  Receive Date: 20190723
  Receipt Date: 20190723
  Transmission Date: 20191005
  Serious: Yes (Life-Threatening)
  Sender: FDA-Public Use
  Company Number: None

PATIENT
  Age: 60 Year
  Sex: Female
  Weight: 59.87 kg

DRUGS (1)
  1. NEOMYCIN AND POLYMYXIN B SULFATES AND DEXAMETHASONE [Suspect]
     Active Substance: DEXAMETHASONE\NEOMYCIN SULFATE\POLYMYXIN B SULFATE
     Indication: EYE SWELLING
     Dosage: ?          QUANTITY:4 DROPS;OTHER ROUTE:DROP INTO THE SWOLLEN EYE?
     Dates: start: 20190622, end: 20190622

REACTIONS (2)
  - Rash [None]
  - Burning sensation [None]

NARRATIVE: CASE EVENT DATE: 20190622
